FAERS Safety Report 20714613 (Version 1)
Quarter: 2022Q2

REPORT INFORMATION
  Report Type: Spontaneous
  Country: US (occurrence: None)
  Receive Date: 20220415
  Receipt Date: 20220415
  Transmission Date: 20220720
  Serious: Yes (Hospitalization)
  Sender: FDA-Public Use
  Company Number: None

PATIENT
  Age: 71 Year
  Sex: Female
  Weight: 67.1 kg

DRUGS (2)
  1. CISPLATIN [Suspect]
     Active Substance: CISPLATIN
     Dates: end: 20220323
  2. ETOPOSIDE [Suspect]
     Active Substance: ETOPOSIDE
     Dates: end: 20220325

REACTIONS (6)
  - Dysphagia [None]
  - Radiation oesophagitis [None]
  - Anaemia [None]
  - Polyneuropathy [None]
  - Type 2 diabetes mellitus [None]
  - Chronic kidney disease [None]

NARRATIVE: CASE EVENT DATE: 20220403
